FAERS Safety Report 24140263 (Version 1)
Quarter: 2024Q3

REPORT INFORMATION
  Report Type: Other
  Country: NL (occurrence: NL)
  Receive Date: 20240726
  Receipt Date: 20240726
  Transmission Date: 20241016
  Serious: Yes (Other)
  Sender: ASTELLAS
  Company Number: None

PATIENT
  Age: 70 Year
  Sex: Male

DRUGS (4)
  1. XTANDI [Suspect]
     Active Substance: ENZALUTAMIDE
     Indication: Prostate cancer metastatic
     Dosage: 160 MG, ONCE DAILY (1D160 MG)
     Route: 065
     Dates: start: 20240116, end: 20240705
  2. GOSERELIN [Concomitant]
     Active Substance: GOSERELIN
     Indication: Product used for unknown indication
     Dosage: 10.8 MG, UNKNOWN FREQ. (IMPLANT STICK)
     Route: 065
  3. FENTANYL [Concomitant]
     Active Substance: FENTANYL\FENTANYL CITRATE
     Indication: Product used for unknown indication
     Dosage: UNK UNK, UNKNOWN FREQ. (PATCH)
     Route: 065
  4. XGEVA [Concomitant]
     Active Substance: DENOSUMAB
     Indication: Product used for unknown indication
     Dosage: UNK UNK, UNKNOWN FREQ.(SOLUTION FOR INJECTION, 70 MG/ML (MILLIGRAMS PER MILLILITER))
     Route: 065

REACTIONS (1)
  - Rectal cancer metastatic [Not Recovered/Not Resolved]
